FAERS Safety Report 20868854 (Version 4)
Quarter: 2022Q3

REPORT INFORMATION
  Report Type: Spontaneous
  Country: US (occurrence: US)
  Receive Date: 20220524
  Receipt Date: 20220721
  Transmission Date: 20221027
  Serious: Yes (Other)
  Sender: FDA-Public Use
  Company Number: US-PFIZER INC-202101566820

PATIENT
  Age: 66 Year
  Sex: Female
  Weight: 72.57 kg

DRUGS (4)
  1. XELJANZ XR [Suspect]
     Active Substance: TOFACITINIB CITRATE
     Indication: Rheumatoid arthritis
     Dosage: 11 MG, 1X/DAY
     Route: 048
  2. LEUCOVORIN [Concomitant]
     Active Substance: LEUCOVORIN
     Indication: Rheumatoid arthritis
     Dosage: 5 MG, WEEKLY (1 TABLET 6-8 HOURS AFTER METHOTREXATE INJECTION ONCE WEEKLY)
  3. METHOTREXATE [Concomitant]
     Active Substance: METHOTREXATE
     Indication: Rheumatoid arthritis
     Dosage: 0.7 MG, WEEKLY (0.7ML INJECTED ONCE WEEKLY)
  4. FOLIC ACID [Concomitant]
     Active Substance: FOLIC ACID
     Indication: Rheumatoid arthritis
     Dosage: 1 MG, 1X/DAY (1MG ONCE DAILY EXCEPT THE DAY SHE TAKES METHOTREXATE INJECTION)

REACTIONS (8)
  - Leukopenia [Unknown]
  - Memory impairment [Unknown]
  - Limb injury [Unknown]
  - Pain [Unknown]
  - Red blood cell sedimentation rate increased [Unknown]
  - Anaemia [Unknown]
  - Pain in extremity [Unknown]
  - Product prescribing error [Unknown]
